FAERS Safety Report 5912940-2 (Version None)
Quarter: 2008Q4

REPORT INFORMATION
  Report Type: 
  Country: None (occurrence: None)
  Receive Date: 20081008
  Receipt Date: 20080926
  Transmission Date: 20090506
  Serious: Yes (Other)
  Sender: FDA-Public Use
  Company Number: GB-PFIZER INC-2008064879

PATIENT
  Age: 49 Year
  Sex: Female

DRUGS (2)
  1. CHANTIX [Suspect]
     Indication: SMOKING CESSATION THERAPY
     Route: 048
     Dates: start: 20080727
  2. ANAESTHETICS, GENERAL [Concomitant]

REACTIONS (4)
  - HYPERHIDROSIS [None]
  - NAUSEA [None]
  - PRURITUS GENERALISED [None]
  - TOE OPERATION [None]
